FAERS Safety Report 5931275-5 (Version None)
Quarter: 2008Q4

REPORT INFORMATION
  Report Type: 
  Country: None (occurrence: None)
  Receive Date: 20081024
  Receipt Date: 20081024
  Transmission Date: 20090506
  Serious: Yes (Hospitalization)
  Sender: FDA-Public Use
  Company Number: None

PATIENT
  Age: 61 Year
  Sex: Male
  Weight: 70.3 kg

DRUGS (1)
  1. CETUXIMAB [Suspect]
     Indication: TONSIL CANCER
     Dosage: 760 MG ONCE IV
     Route: 042
     Dates: start: 20080901, end: 20080901

REACTIONS (1)
  - HYPOTENSION [None]
